FAERS Safety Report 8260761 (Version 3)
Quarter: 2013Q3

REPORT INFORMATION
  Report Type: Report from Study
  Country: US (occurrence: US)
  Receive Date: 20111123
  Receipt Date: 20130712
  Transmission Date: 20140515
  Serious: Yes (Hospitalization)
  Sender: FDA-Public Use
  Company Number: US-BRISTOL-MYERS SQUIBB COMPANY-15405400

PATIENT
  Age: 62 Year
  Sex: Male
  Weight: 150.3 kg

DRUGS (10)
  1. SAXAGLIPTIN [Suspect]
     Indication: TYPE 2 DIABETES MELLITUS
     Dosage: LAST DOSE:22NOV2010
     Route: 048
     Dates: start: 20101028, end: 20101122
  2. METFORMIN HCL [Suspect]
     Indication: DIABETES MELLITUS
     Dosage: ALSO AS 2000MG
     Route: 048
     Dates: start: 2000
  3. GLYBURIDE [Suspect]
     Indication: DIABETES MELLITUS
     Dosage: ALSO 2.5MG
     Route: 048
     Dates: start: 2000
  4. FENOFIBRATE [Suspect]
  5. PIROXICAM [Concomitant]
     Indication: RHEUMATOID ARTHRITIS
     Route: 048
     Dates: start: 2007
  6. MELOXICAM [Concomitant]
     Indication: RHEUMATOID ARTHRITIS
     Route: 048
     Dates: start: 2007
  7. LISINOPRIL [Concomitant]
     Indication: HYPERTENSION
     Route: 048
     Dates: start: 2005
  8. SIMVASTATIN [Concomitant]
     Indication: HYPERLIPIDAEMIA
     Route: 048
     Dates: start: 2005
  9. TRILIPIX [Concomitant]
     Indication: HYPERLIPIDAEMIA
     Route: 048
     Dates: start: 2009
  10. ASPIRIN [Concomitant]
     Dosage: 1 DF:MORE THAN 100 MG; FIRST REPORTED ON 26-OCT-2010

REACTIONS (2)
  - Hypoglycaemia [Recovered/Resolved]
  - Renal failure acute [Recovered/Resolved]
